FAERS Safety Report 6887973-2 (Version None)
Quarter: 2010Q3

REPORT INFORMATION
  Report Type: 
  Country: None (occurrence: None)
  Receive Date: 20100730
  Receipt Date: 20100720
  Transmission Date: 20110219
  Serious: Yes (Death, Hospitalization)
  Sender: FDA-Public Use
  Company Number: A0867101A

PATIENT
  Age: 79 Year
  Sex: Male
  Weight: 111.4 kg

DRUGS (10)
  1. AVANDIA [Suspect]
     Route: 048
  2. TERBINAFINE HCL [Concomitant]
  3. ALPRAZOLAM [Concomitant]
  4. CLONAZEPAM [Concomitant]
  5. TERAZOSIN HCL [Concomitant]
  6. CLONIDINE [Concomitant]
  7. LISINOPRIL [Concomitant]
  8. SILDENAFIL CITRATE [Concomitant]
  9. INSULIN [Concomitant]
  10. FINASTERIDE [Concomitant]

REACTIONS (8)
  - CARDIAC DISORDER [None]
  - CARDIAC FAILURE CONGESTIVE [None]
  - CHRONIC OBSTRUCTIVE PULMONARY DISEASE [None]
  - MYOCARDIAL INFARCTION [None]
  - PNEUMONIA [None]
  - RENAL DISORDER [None]
  - RENAL FAILURE CHRONIC [None]
  - RESPIRATORY DISORDER [None]
